FAERS Safety Report 16355928 (Version 1)
Quarter: 2019Q2

REPORT INFORMATION
  Report Type: Spontaneous
  Country: FR (occurrence: FR)
  Receive Date: 20190526
  Receipt Date: 20190526
  Transmission Date: 20190711
  Serious: Yes (Hospitalization)
  Sender: FDA-Public Use
  Company Number: PHHY2019FR117086

PATIENT
  Age: 87 Year
  Sex: Male
  Weight: 95.6 kg

DRUGS (24)
  1. PREVISCAN(FLUINDIONE) [Suspect]
     Active Substance: FLUINDIONE
     Dosage: 5 MG, QD (0-0-0.25)
     Route: 048
     Dates: start: 20190502
  2. PARACETAMOL SANDOZ [Concomitant]
     Active Substance: ACETAMINOPHEN
     Dosage: 1500 MG, QD (1-1-1)
     Route: 048
     Dates: start: 20190502
  3. ESOMEPRAZOLE SANDOZ [Concomitant]
     Active Substance: ESOMEPRAZOLE
     Dosage: 40 MG, QD (0-0-1)
     Route: 048
     Dates: start: 20190502
  4. PREVISCAN(FLUINDIONE) [Suspect]
     Active Substance: FLUINDIONE
     Indication: ATRIAL FIBRILLATION
     Dosage: 5 MG, QD (0-0-0.25)
     Route: 048
     Dates: start: 2018
  5. CIPROFLOXACIN SANDOZ [Interacting]
     Active Substance: CIPROFLOXACIN
     Indication: URINARY TRACT INFECTION
     Dosage: 1000 MG, QD (1-0-1)
     Route: 048
     Dates: start: 20190417
  6. CIPROFLOXACIN SANDOZ [Interacting]
     Active Substance: CIPROFLOXACIN
     Dosage: 1000 MG, QD (1-0-1)
     Route: 048
     Dates: start: 20190424
  7. DUOTRAV [Concomitant]
     Active Substance: TIMOLOL MALEATE\TRAVOPROST
     Indication: GLAUCOMA
     Dosage: 1 DF, QD (0-0-1)
     Route: 047
  8. ATORVASTATIN SANDOZ [Suspect]
     Active Substance: ATORVASTATIN
     Indication: MYOCARDIAL ISCHAEMIA
     Dosage: 10 MG, QD (0-0-1)
     Route: 048
     Dates: start: 2015
  9. TRAMADOL PARACETAMOL SANDOZ [Interacting]
     Active Substance: ACETAMINOPHEN\TRAMADOL
     Indication: PAIN
     Dosage: 3 DF, QD (1-1-1)
     Route: 048
     Dates: start: 2018
  10. TAREG [Concomitant]
     Active Substance: VALSARTAN
     Dosage: 40 MG, QD (1-0-0)
     Route: 048
     Dates: start: 20190502
  11. VOGALENE [Concomitant]
     Active Substance: METOPIMAZINE
     Indication: NAUSEA
     Dosage: 7.5 MG, UNK
     Route: 048
  12. ATORVASTATIN SANDOZ [Interacting]
     Active Substance: ATORVASTATIN
     Dosage: 10 MG, QD (0-0-1)
     Route: 048
     Dates: start: 20190502
  13. XULTOPHY 100/3.6 [Concomitant]
     Active Substance: INSULIN DEGLUDEC\LIRAGLUTIDE
     Indication: TYPE 2 DIABETES MELLITUS
     Dosage: 30 IU, QD (1-0-0)
     Route: 058
  14. JANUVIA [Concomitant]
     Active Substance: SITAGLIPTIN PHOSPHATE
     Dosage: 100 MG, QD (1-0-0)
     Route: 048
     Dates: start: 20190502
  15. DUOTRAV [Concomitant]
     Active Substance: TIMOLOL MALEATE\TRAVOPROST
     Dosage: 1 DF, QD (0-0-1)
     Route: 047
     Dates: start: 20190502
  16. VOGALENE [Concomitant]
     Active Substance: METOPIMAZINE
     Dosage: 7.5 MG, UNK
     Route: 048
     Dates: start: 20190502
  17. TAREG [Concomitant]
     Active Substance: VALSARTAN
     Indication: MYOCARDIAL ISCHAEMIA
     Dosage: 40 MG, QD (1-0-0)
     Route: 048
  18. PARACETAMOL SANDOZ [Concomitant]
     Active Substance: ACETAMINOPHEN
     Indication: PAIN
     Dosage: 1500 MG, QD (1-1-1)
     Route: 048
  19. BISOPROLOL SANDOZ [Concomitant]
     Active Substance: BISOPROLOL
     Indication: MYOCARDIAL ISCHAEMIA
     Dosage: 2.5 MG, QD (1-0-0)
     Route: 048
  20. JANUVIA [Concomitant]
     Active Substance: SITAGLIPTIN PHOSPHATE
     Indication: TYPE 2 DIABETES MELLITUS
     Dosage: 100 MG, QD (1-0-0)
     Route: 048
  21. TRAMADOL PARACETAMOL SANDOZ [Interacting]
     Active Substance: ACETAMINOPHEN\TRAMADOL
     Dosage: 3 DF, QD (1-1-1)
     Route: 048
     Dates: start: 20190502
  22. XULTOPHY 100/3.6 [Concomitant]
     Active Substance: INSULIN DEGLUDEC\LIRAGLUTIDE
     Dosage: 30 IU, QD (1-0-0)
     Route: 058
     Dates: start: 20190502
  23. BISOPROLOL SANDOZ [Concomitant]
     Active Substance: BISOPROLOL
     Dosage: 2.5 MG, QD (1-0-0)
     Route: 048
     Dates: start: 20190502
  24. ESOMEPRAZOLE SANDOZ [Concomitant]
     Active Substance: ESOMEPRAZOLE
     Indication: PEPTIC ULCER
     Dosage: 40 MG, QD (0-0-1)
     Route: 048

REACTIONS (3)
  - International normalised ratio increased [Recovered/Resolved]
  - Haematemesis [Recovered/Resolved]
  - Melaena [Recovered/Resolved]

NARRATIVE: CASE EVENT DATE: 20190502
